FAERS Safety Report 9547560 (Version 1)
Quarter: 2013Q2

REPORT INFORMATION
  Report Type: Spontaneous
  Country: US (occurrence: None)
  Receive Date: 20130606
  Receipt Date: 20130606
  Transmission Date: 20140414
  Serious: No
  Sender: FDA-Public Use
  Company Number: 163-POMAL-13051043

PATIENT
  Age: 66 Year
  Sex: Male

DRUGS (9)
  1. POMALYST [Suspect]
     Indication: PLASMA CELL MYELOMA
     Dosage: 21 IN 21 D
     Route: 048
     Dates: start: 20130408
  2. ACYCLOVIR (ACICLOVIR) (UNKNOWN) [Concomitant]
  3. ALPHA LIPOIC ACID (THIOCTIC ACID) (UNKNOWN) [Concomitant]
  4. ATIVAN (LORAZEPAM) (UNKNOWN) [Concomitant]
  5. CLONIDINE HCL (CLONIDINE HYDROCHLORIDE) (UNKNOWN) [Concomitant]
  6. DEXAMETHASONE (DEXAMETHASONE) (UNKNOWN) [Concomitant]
  7. FLUCONAZOLE (FLUCONAZOLE) (UNKNOWN) [Concomitant]
  8. CARNITINE (ACETYLCARNITINE) (UNKNOWN) [Concomitant]
  9. GLUTAMIC ACID HCL (GLUTAMIC ACID) (UNKNOWN) [Concomitant]

REACTIONS (1)
  - Oedema peripheral [None]
